FAERS Safety Report 17692229 (Version 2)
Quarter: 2020Q2

REPORT INFORMATION
  Report Type: Spontaneous
  Country: US (occurrence: US)
  Receive Date: 20200422
  Receipt Date: 20200423
  Transmission Date: 20200714
  Serious: Yes (Other)
  Sender: FDA-Public Use
  Company Number: US-PFIZER INC-2020157044

PATIENT
  Age: 57 Year
  Sex: Female
  Weight: 76 kg

DRUGS (1)
  1. METHOTREXATE SODIUM. [Suspect]
     Active Substance: METHOTREXATE SODIUM
     Indication: RHEUMATOID ARTHRITIS
     Dosage: 0.8 MG, WEEKLY (ONCE A WEEK)
     Route: 030
     Dates: start: 201910

REACTIONS (5)
  - Breast cancer [Unknown]
  - Off label use [Unknown]
  - Drug ineffective [Unknown]
  - Feeling abnormal [Unknown]
  - Product use issue [Unknown]
